FAERS Safety Report 14220183 (Version 2)
Quarter: 2019Q4

REPORT INFORMATION
  Report Type: Spontaneous
  Country: US (occurrence: US)
  Receive Date: 20171123
  Receipt Date: 20191028
  Transmission Date: 20200122
  Serious: No
  Sender: FDA-Public Use
  Company Number: US-JNJFOC-20171011132

PATIENT
  Sex: Male

DRUGS (6)
  1. RISPERDAL [Suspect]
     Active Substance: RISPERIDONE
     Indication: OPPOSITIONAL DEFIANT DISORDER
  2. RISPERIDONE. [Suspect]
     Active Substance: RISPERIDONE
     Indication: INTERMITTENT EXPLOSIVE DISORDER
     Dosage: VARYING DOSE OF 0.5 MG AND 2 MG
     Route: 065
     Dates: start: 20130218, end: 20130902
  3. RISPERDAL [Suspect]
     Active Substance: RISPERIDONE
     Indication: REACTIVE ATTACHMENT DISORDER OF INFANCY OR EARLY CHILDHOOD
     Dosage: 0.5 MG TWICE DAILY
     Route: 048
     Dates: start: 20020101, end: 20130902
  4. RISPERIDONE. [Suspect]
     Active Substance: RISPERIDONE
     Indication: REACTIVE ATTACHMENT DISORDER OF INFANCY OR EARLY CHILDHOOD
  5. RISPERIDONE. [Suspect]
     Active Substance: RISPERIDONE
     Indication: OPPOSITIONAL DEFIANT DISORDER
  6. RISPERDAL [Suspect]
     Active Substance: RISPERIDONE
     Indication: INTERMITTENT EXPLOSIVE DISORDER

REACTIONS (2)
  - Gynaecomastia [Unknown]
  - Emotional distress [Unknown]
